FAERS Safety Report 7331782-7 (Version None)
Quarter: 2011Q1

REPORT INFORMATION
  Report Type: 
  Country: None (occurrence: None)
  Receive Date: 20110304
  Receipt Date: 20110222
  Transmission Date: 20110831
  Serious: Yes (Other)
  Sender: FDA-Public Use
  Company Number: US-JNJFOC-20110206955

PATIENT
  Sex: Male

DRUGS (2)
  1. THALOMID [Suspect]
     Indication: PROSTATE CANCER METASTATIC
     Route: 048
  2. DOXORUBICIN HCL [Suspect]
     Indication: PROSTATE CANCER METASTATIC
     Dosage: OVER 90 MIN ON DAY 1, FIRST 28 DAY CYCLE, THEN 60 MIN IF NO ALLERGIC REACTION, MAXIMUM 6 CYCLES
     Route: 042

REACTIONS (1)
  - BRADYCARDIA [None]
